FAERS Safety Report 9559970 (Version 1)
Quarter: 2013Q3

REPORT INFORMATION
  Report Type: Spontaneous
  Country: US (occurrence: US)
  Receive Date: 20130927
  Receipt Date: 20130927
  Transmission Date: 20140515
  Serious: Yes (Other)
  Sender: FDA-Public Use
  Company Number: US-PFIZER INC-2013275784

PATIENT
  Age: 37 Year
  Sex: Female

DRUGS (1)
  1. PHENELZINE SULFATE [Suspect]
     Indication: MAJOR DEPRESSION
     Dosage: 60 MG, 1X/DAY
     Dates: start: 2013

REACTIONS (5)
  - Weight increased [Unknown]
  - Psychomotor hyperactivity [Unknown]
  - Contusion [Unknown]
  - Oedema peripheral [Unknown]
  - Localised oedema [Unknown]
